FAERS Safety Report 15510255 (Version 1)
Quarter: 2018Q4

REPORT INFORMATION
  Report Type: Spontaneous
  Country: US (occurrence: US)
  Receive Date: 20181017
  Receipt Date: 20181017
  Transmission Date: 20190205
  Serious: Yes (Hospitalization)
  Sender: FDA-Public Use
  Company Number: None

PATIENT
  Age: 36 Year
  Sex: Female

DRUGS (3)
  1. AZATHIOPRINE. [Suspect]
     Active Substance: AZATHIOPRINE
     Indication: PRODUCT USED FOR UNKNOWN INDICATION
     Route: 048
     Dates: start: 20180207
  2. ATORVASTATIN [Concomitant]
     Active Substance: ATORVASTATIN
  3. SPIRONOLACT [Concomitant]
     Active Substance: SPIRONOLACTONE

REACTIONS (3)
  - Cardiac disorder [None]
  - Blood pressure abnormal [None]
  - Product dose omission [None]

NARRATIVE: CASE EVENT DATE: 20181001
